FAERS Safety Report 4580400-X (Version None)
Quarter: 2005Q1

REPORT INFORMATION
  Report Type: 
  Country: None (occurrence: None)
  Receive Date: 20050214
  Receipt Date: 20040114
  Transmission Date: 20050727
  Serious: No
  Sender: FDA-Public Use
  Company Number: US-GLAXOSMITHKLINE-A0493286A

PATIENT
  Age: 10 Year
  Sex: Male

DRUGS (1)
  1. LAMICTAL [Suspect]
     Dosage: 25MG TWICE PER DAY
     Route: 048

REACTIONS (2)
  - MEDICATION ERROR [None]
  - VOMITING [None]
